FAERS Safety Report 10137336 (Version 1)
Quarter: 2014Q2

REPORT INFORMATION
  Report Type: Report from Study
  Country: CN (occurrence: CN)
  Receive Date: 20140429
  Receipt Date: 20140429
  Transmission Date: 20141212
  Serious: Yes (Other)
  Sender: FDA-Public Use
  Company Number: CN-ROCHE-1384238

PATIENT
  Age: 63 Year
  Sex: Male

DRUGS (15)
  1. HERCEPTIN [Suspect]
     Indication: HER-2 POSITIVE GASTRIC CANCER
     Dosage: DAY 2
     Route: 065
     Dates: start: 20120615, end: 20120615
  2. HERCEPTIN [Suspect]
     Dosage: DAY 1
     Route: 065
     Dates: start: 20120709
  3. HERCEPTIN [Suspect]
     Dosage: 360MG DAY 1
     Route: 065
     Dates: start: 20120802
  4. XELODA [Suspect]
     Indication: HER-2 POSITIVE GASTRIC CANCER
     Dosage: 3500 PER DAY, DAY 1-DAY 14
     Route: 048
     Dates: start: 20120615
  5. XELODA [Suspect]
     Dosage: 3000 PER DAY DAY 1-DAY 14
     Route: 048
     Dates: start: 20120709
  6. GIMERACIL/OTERACIL POTASSIUM [Concomitant]
     Indication: HER-2 POSITIVE GASTRIC CANCER
     Dosage: DAY 1-DAY 14 FOLLOWED BY A 7-DAY REST PERIOD
     Route: 048
     Dates: start: 20120802
  7. OXALIPLATIN [Concomitant]
     Indication: HER-2 POSITIVE GASTRIC CANCER
     Dosage: 230MG DAY 1
     Route: 041
     Dates: start: 20120615, end: 20120615
  8. OXALIPLATIN [Concomitant]
     Dosage: 203MG DAY1
     Route: 041
     Dates: start: 20120709, end: 20120709
  9. OXALIPLATIN [Concomitant]
     Dosage: 230MG DAY1
     Route: 065
     Dates: start: 20120802, end: 20120802
  10. PACLITAXEL [Concomitant]
     Indication: GASTRIC CANCER
     Dosage: 120MG DAY 1, DAY 8
     Route: 065
  11. PACLITAXEL [Concomitant]
     Dosage: 4 CYCLES PACLITAXEL 120MG DAY 1, DAY 8,
     Route: 065
     Dates: start: 20100901, end: 201012
  12. PACLITAXEL [Concomitant]
     Dosage: 2 CYCLES
     Route: 065
  13. CIS-PLATINUM [Concomitant]
     Indication: GASTRIC CANCER
     Dosage: 40MG DAY 1-DAY 3
     Route: 065
  14. CIS-PLATINUM [Concomitant]
     Route: 065
     Dates: start: 20100901, end: 201012
  15. FLUOROURACIL [Concomitant]
     Indication: METASTASES TO CENTRAL NERVOUS SYSTEM
     Dosage: 2 CYCLES
     Route: 065

REACTIONS (4)
  - Palmar-plantar erythrodysaesthesia syndrome [Unknown]
  - Lacunar infarction [Unknown]
  - Asthenia [Unknown]
  - Decreased appetite [Unknown]
